FAERS Safety Report 16218810 (Version 1)
Quarter: 2019Q2

REPORT INFORMATION
  Report Type: Spontaneous
  Country: US (occurrence: US)
  Receive Date: 20190419
  Receipt Date: 20190419
  Transmission Date: 20190711
  Serious: No
  Sender: FDA-Public Use
  Company Number: US-UPSHER-SMITH LABORATORIES, LLC-2018USL00224

PATIENT
  Sex: Female
  Weight: 52.15 kg

DRUGS (2)
  1. UNSPECIFIED OPIOIDS [Concomitant]
     Dosage: UNK
     Dates: start: 1998
  2. QUDEXY XR [Suspect]
     Active Substance: TOPIRAMATE
     Indication: MIGRAINE
     Dosage: 100 MG, ONCE
     Route: 048
     Dates: start: 20180521, end: 20180521

REACTIONS (3)
  - Feeling drunk [Not Recovered/Not Resolved]
  - Dizziness [Not Recovered/Not Resolved]
  - Accidental overdose [Recovered/Resolved]

NARRATIVE: CASE EVENT DATE: 20180521
